FAERS Safety Report 8391935 (Version 2)
Quarter: 2015Q1

REPORT INFORMATION
  Report Type: Report from Study
  Country: US (occurrence: US)
  Receive Date: 20120206
  Receipt Date: 20150303
  Transmission Date: 20150721
  Serious: Yes (Death)
  Sender: FDA-Public Use
  Company Number: US-ROCHE-1036199

PATIENT
  Sex: Female

DRUGS (8)
  1. DECADRON [Concomitant]
     Active Substance: DEXAMETHASONE
     Route: 048
  2. TEMODAR [Concomitant]
     Active Substance: TEMOZOLOMIDE
  3. DECADRON [Concomitant]
     Active Substance: DEXAMETHASONE
     Route: 048
  4. DECADRON [Concomitant]
     Active Substance: DEXAMETHASONE
     Route: 048
  5. INNOHEP [Concomitant]
     Active Substance: TINZAPARIN SODIUM
     Route: 058
  6. AVASTIN [Suspect]
     Active Substance: BEVACIZUMAB
     Indication: BRAIN NEOPLASM MALIGNANT
     Route: 042
     Dates: start: 20061108
  7. VITAMIN K [Concomitant]
     Active Substance: PHYTONADIONE
     Route: 042
  8. COUMADIN [Concomitant]
     Active Substance: WARFARIN SODIUM
     Route: 048

REACTIONS (13)
  - Purpura [Unknown]
  - Skin haemorrhage [Unknown]
  - Off label use [Unknown]
  - Lethargy [Unknown]
  - Resting tremor [Unknown]
  - Prothrombin level increased [Unknown]
  - General physical health deterioration [Unknown]
  - Asthenia [Unknown]
  - Fatigue [Unknown]
  - Increased tendency to bruise [Unknown]
  - Decubitus ulcer [Unknown]
  - Death [Fatal]
  - Alopecia [Recovering/Resolving]
